FAERS Safety Report 14299426 (Version 2)
Quarter: 2021Q4

REPORT INFORMATION
  Report Type: Spontaneous
  Country: RO (occurrence: RO)
  Receive Date: 20171219
  Receipt Date: 20211223
  Transmission Date: 20220303
  Serious: Yes (Other)
  Sender: FDA-Public Use
  Company Number: RO-AMGEN-ROUSP2017187276

PATIENT
  Age: 58 Year
  Sex: Male

DRUGS (6)
  1. VECTIBIX [Suspect]
     Active Substance: PANITUMUMAB
     Indication: Adenocarcinoma of colon
     Dosage: UNK
     Route: 042
     Dates: start: 201707, end: 201810
  2. LEUCOVORIN [Concomitant]
     Active Substance: LEUCOVORIN
     Indication: Adenocarcinoma of colon
     Dosage: UNK
     Dates: start: 201707
  3. FLUOROURACIL [Concomitant]
     Active Substance: FLUOROURACIL
     Indication: Adenocarcinoma of colon
     Dosage: UNK
     Dates: start: 201707
  4. OXALIPLATIN [Concomitant]
     Active Substance: OXALIPLATIN
     Indication: Adenocarcinoma of colon
     Dosage: UNK
     Dates: start: 201707
  5. MEROPENEM [Concomitant]
     Active Substance: MEROPENEM
     Indication: Staphylococcal sepsis
     Dosage: UNK
     Dates: start: 2017
  6. LINEZOLID [Concomitant]
     Active Substance: LINEZOLID
     Indication: Staphylococcal sepsis
     Dosage: UNK
     Dates: start: 2017

REACTIONS (4)
  - Staphylococcal sepsis [Recovered/Resolved]
  - Neuropathy peripheral [Recovered/Resolved]
  - Metastases to liver [Not Recovered/Not Resolved]
  - Rash pustular [Recovered/Resolved]

NARRATIVE: CASE EVENT DATE: 20170801
